FAERS Safety Report 4759130-7 (Version None)
Quarter: 2005Q3

REPORT INFORMATION
  Report Type: 
  Country: None (occurrence: None)
  Receive Date: 20050831
  Receipt Date: 20050815
  Transmission Date: 20060218
  Serious: Yes (Death)
  Sender: FDA-Public Use
  Company Number: S05-FRA-03091-01

PATIENT
  Age: 81 Year
  Sex: Female

DRUGS (2)
  1. MEMANTINE HCL [Suspect]
     Indication: DEMENTIA ALZHEIMER'S TYPE
     Dates: start: 20030101
  2. GALANTAMINE HYDROBROMIDE [Concomitant]

REACTIONS (2)
  - BUDD-CHIARI SYNDROME [None]
  - HEPATIC ENCEPHALOPATHY [None]
